FAERS Safety Report 5284933-2 (Version None)
Quarter: 2007Q2

REPORT INFORMATION
  Report Type: 
  Country: None (occurrence: None)
  Receive Date: 20070403
  Receipt Date: 20070330
  Transmission Date: 20071010
  Serious: Yes (Hospitalization, Other)
  Sender: FDA-Public Use
  Company Number: 2006UW21860

PATIENT
  Age: 55 Year
  Sex: Female
  Weight: 84.1 kg

DRUGS (3)
  1. SEROQUEL [Suspect]
     Indication: SLEEP DISORDER
     Dosage: 1-2 TABLETS
     Route: 048
     Dates: start: 20020101, end: 20060101
  2. CELEXA [Concomitant]
  3. ATIVAN [Concomitant]

REACTIONS (3)
  - DIABETES MELLITUS [None]
  - NEPHROLITHIASIS [None]
  - NEUROPATHY [None]
